FAERS Safety Report 7688244-7 (Version None)
Quarter: 2011Q3

REPORT INFORMATION
  Report Type: 
  Country: None (occurrence: None)
  Receive Date: 20110817
  Receipt Date: 20110714
  Transmission Date: 20111222
  Serious: No
  Sender: FDA-Public Use
  Company Number: US-GLAXOSMITHKLINE-A0936851A

PATIENT
  Age: 70 Year
  Sex: Female

DRUGS (6)
  1. VOTRIENT [Suspect]
     Indication: THYROID CANCER
     Dosage: 800MG PER DAY
     Route: 048
     Dates: start: 20110706
  2. CITRACAL [Concomitant]
  3. SYNTHROID [Concomitant]
  4. VITAMIN D [Concomitant]
  5. PRILOSEC [Concomitant]
  6. MAGNESIUM [Concomitant]

REACTIONS (8)
  - ABDOMINAL PAIN UPPER [None]
  - GASTRIC DISORDER [None]
  - FATIGUE [None]
  - FLATULENCE [None]
  - ASTHENIA [None]
  - WEIGHT DECREASED [None]
  - DIARRHOEA [None]
  - MUSCLE SPASMS [None]
